FAERS Safety Report 9258114 (Version 2)
Quarter: 2014Q1

REPORT INFORMATION
  Report Type: Spontaneous
  Country: US (occurrence: None)
  Receive Date: 20121212
  Receipt Date: 20130314
  Transmission Date: 20141002
  Serious: No
  Sender: FDA-Public Use
  Company Number: 1209USA004495

PATIENT
  Age: 50 Year
  Sex: Female

DRUGS (3)
  1. PEGINTRON (PEGINTERFERON ALFA-2B) POWDER FOR INJECTION [Suspect]
     Indication: HEPATITIS C
     Dates: start: 20120606
  2. RIBAVIRIN (RIBAVIRIN) CAPSULE [Suspect]
     Indication: HEPATITIS C
     Dates: start: 20120606
  3. VICTRELIS (BOCEPREVIR) CAPSULE [Suspect]
     Indication: HEPATITIS C
     Dates: start: 20120704

REACTIONS (14)
  - Panic reaction [None]
  - Nausea [None]
  - Depressed mood [None]
  - Mood altered [None]
  - Anaemia [None]
  - Menometrorrhagia [None]
  - Drug ineffective [None]
  - Therapeutic response decreased [None]
  - Fatigue [None]
  - Pain [None]
  - Dysgeusia [None]
  - Photosensitivity reaction [None]
  - Haemorrhage [None]
  - Arthritis [None]
